FAERS Safety Report 5466527-9 (Version None)
Quarter: 2007Q3

REPORT INFORMATION
  Report Type: 
  Country: None (occurrence: None)
  Receive Date: 20070925
  Receipt Date: 20070914
  Transmission Date: 20080115
  Serious: Yes (Hospitalization)
  Sender: FDA-Public Use
  Company Number: FR-NOVOPROD-267190

PATIENT
  Sex: Female

DRUGS (11)
  1. NOVONORM [Suspect]
     Indication: TYPE 2 DIABETES MELLITUS
     Dosage: 3 MG, QD
     Route: 048
     Dates: end: 20070702
  2. TEGRETOL [Concomitant]
     Indication: EPILEPSY
     Dosage: 1 G, QD
     Route: 048
  3. DEPRAKINE                          /00228501/ [Concomitant]
     Indication: EPILEPSY
     Dosage: 2.5 G, QD
     Route: 048
     Dates: end: 20070708
  4. COTAREG [Concomitant]
     Indication: HYPERTENSION
     Dosage: 1 TAB, QD
     Route: 048
     Dates: end: 20070702
  5. FENOFIBRATE [Concomitant]
     Route: 048
     Dates: end: 20070702
  6. TENSTATEN                          /00924301/ [Concomitant]
     Indication: HYPERTENSION
     Route: 048
     Dates: end: 20070702
  7. EQUANIL [Concomitant]
     Route: 048
  8. AVANDAMET [Concomitant]
     Route: 048
  9. VALIUM [Concomitant]
     Route: 048
  10. BRICANYL [Concomitant]
     Route: 055
  11. ATROVENT [Concomitant]
     Dosage: UNK, UNK
     Route: 055

REACTIONS (2)
  - HYPERAMMONAEMIA [None]
  - METABOLIC ENCEPHALOPATHY [None]
